FAERS Safety Report 14070904 (Version 1)
Quarter: 2017Q4

REPORT INFORMATION
  Report Type: Spontaneous
  Country: US (occurrence: US)
  Receive Date: 20171010
  Receipt Date: 20171010
  Transmission Date: 20180321
  Serious: No
  Sender: FDA-Public Use
  Company Number: US-JNJFOC-20170907127

PATIENT
  Age: 53 Year
  Sex: Male
  Weight: 140 kg

DRUGS (18)
  1. LISINOPRIL. [Concomitant]
     Active Substance: LISINOPRIL
  2. CALCIUM CITRATE [Concomitant]
     Active Substance: CALCIUM CITRATE
  3. SINGULAIR [Concomitant]
     Active Substance: MONTELUKAST SODIUM
  4. MULTIVITAMINS [Concomitant]
     Active Substance: VITAMINS
  5. IBUPROFEN. [Concomitant]
     Active Substance: IBUPROFEN
  6. VIAGRA [Concomitant]
     Active Substance: SILDENAFIL CITRATE
  7. STRATTERA [Concomitant]
     Active Substance: ATOMOXETINE HYDROCHLORIDE
  8. IMBRUVICA [Suspect]
     Active Substance: IBRUTINIB
     Indication: CHRONIC LYMPHOCYTIC LEUKAEMIA
     Route: 048
     Dates: start: 20160408
  9. MAGNESIUM [Concomitant]
     Active Substance: MAGNESIUM
  10. LANTUS [Concomitant]
     Active Substance: INSULIN GLARGINE
  11. MOMETASONE FUROATE. [Concomitant]
     Active Substance: MOMETASONE FUROATE
  12. OMEPRAZOLE. [Concomitant]
     Active Substance: OMEPRAZOLE
  13. FENOFIBRATE. [Concomitant]
     Active Substance: FENOFIBRATE
  14. ADVAIR HFA [Concomitant]
     Active Substance: FLUTICASONE PROPIONATE\SALMETEROL XINAFOATE
  15. MUCINEX [Concomitant]
     Active Substance: GUAIFENESIN
  16. ASPIRIN. [Concomitant]
     Active Substance: ASPIRIN
  17. ALBUTEROL. [Concomitant]
     Active Substance: ALBUTEROL
  18. LYRICA [Concomitant]
     Active Substance: PREGABALIN

REACTIONS (2)
  - Food intolerance [Unknown]
  - Weight decreased [Unknown]

NARRATIVE: CASE EVENT DATE: 201708
